FAERS Safety Report 14683264 (Version 1)
Quarter: 2018Q1

REPORT INFORMATION
  Report Type: Spontaneous
  Country: US (occurrence: US)
  Receive Date: 20180326
  Receipt Date: 20180326
  Transmission Date: 20180509
  Serious: No
  Sender: FDA-Public Use
  Company Number: None

PATIENT
  Age: 69 Year
  Sex: Female
  Weight: 97.52 kg

DRUGS (7)
  1. HYDROXYCHOROQUINE [Concomitant]
  2. HYDROCODON/ACETAMINOP [Concomitant]
  3. METOPROLOL TARTRATE. [Concomitant]
     Active Substance: METOPROLOL TARTRATE
  4. COUMADIN [Suspect]
     Active Substance: WARFARIN SODIUM
     Indication: DEEP VEIN THROMBOSIS
     Dosage: 2 MG THURS + TUES, 3 MG REST OF WEEK, BEDTIME, MOUTH
     Route: 048
     Dates: start: 20140203, end: 20180121
  5. STOOL SOFTENER PLUS STIMULANT LAXATIVE [Concomitant]
     Active Substance: DOCUSATE SODIUM\SENNOSIDES
  6. CLARITIN [Concomitant]
     Active Substance: LORATADINE
  7. CALCIUM PLUS VIT D3 [Concomitant]

REACTIONS (3)
  - International normalised ratio increased [None]
  - Blue toe syndrome [None]
  - Heart rate decreased [None]

NARRATIVE: CASE EVENT DATE: 20180121
